FAERS Safety Report 6995960 (Version 6)
Quarter: 2013Q1

REPORT INFORMATION
  Report Type: Spontaneous
  Country: ES (occurrence: ES)
  Receive Date: 20090515
  Receipt Date: 20130304
  Transmission Date: 20140127
  Serious: Yes (Death, Life-Threatening, Hospitalization, Other)
  Sender: FDA-Public Use
  Company Number: PHHY2009ES18497

PATIENT
  Age: 56 None
  Sex: Male
  Weight: 85 kg

DRUGS (10)
  1. EVEROLIMUS [Suspect]
     Indication: HEPATIC CANCER RECURRENT
     Dosage: 1.5 MG, BID
     Route: 048
     Dates: start: 2005
  2. NEXAVAR [Suspect]
     Indication: HEPATIC CANCER RECURRENT
     Dosage: 800 MG, DAILY
     Route: 048
     Dates: start: 20080428, end: 20090322
  3. ADIRO [Concomitant]
     Indication: PLATELET AGGREGATION INHIBITION
     Dosage: 100 MG, UNK
     Route: 048
  4. TRIALMIN [Concomitant]
     Indication: HYPERTRIGLYCERIDAEMIA
     Dosage: 900 MG, UNK
     Route: 048
  5. EUGLUCON [Concomitant]
     Dosage: UNK UKN, UNK
  6. LESCOL [Concomitant]
     Dosage: UNK UKN, UNK
  7. ATACAND PLUS [Concomitant]
     Indication: HYPERTENSION
     Dosage: UNK UKN, UNK
  8. RESINCALCIO [Concomitant]
     Indication: HYPERKALAEMIA
     Dosage: UNK UKN, UNK
  9. NEURONTIN [Concomitant]
     Indication: DIABETIC NEPHROPATHY
     Dosage: UNK UKN, UNK
  10. INSULIN [Concomitant]
     Indication: DIABETES MELLITUS
     Dosage: UNK UKN, UNK

REACTIONS (35)
  - Hepatocellular carcinoma [Fatal]
  - Metastases to peritoneum [Fatal]
  - Malignant neoplasm progression [Fatal]
  - Terminal state [Fatal]
  - Pulmonary oedema [Recovering/Resolving]
  - Cardiac failure [Recovering/Resolving]
  - Dilatation ventricular [Unknown]
  - Ejection fraction decreased [Unknown]
  - Mitral valve incompetence [Unknown]
  - Ventricular dysfunction [Unknown]
  - Cardiomegaly [Unknown]
  - Cardiac murmur [Unknown]
  - Ventricular hypokinesia [Unknown]
  - Cardiac arrest [Unknown]
  - Cardiogenic shock [Recovered/Resolved with Sequelae]
  - Hypotension [Recovered/Resolved]
  - Cardiac failure congestive [Recovered/Resolved with Sequelae]
  - Low cardiac output syndrome [Unknown]
  - Ischaemic hepatitis [Unknown]
  - Metabolic acidosis [Recovered/Resolved]
  - Respiratory failure [Unknown]
  - Renal failure acute [Recovered/Resolved]
  - Blood creatinine increased [Unknown]
  - Hypocalcaemia [Recovered/Resolved]
  - Pleural effusion [Unknown]
  - Tumour invasion [Not Recovered/Not Resolved]
  - Hypovolaemic shock [Not Recovered/Not Resolved]
  - Gastrointestinal haemorrhage [Not Recovered/Not Resolved]
  - Aortic valve sclerosis [Unknown]
  - Cardiotoxicity [Unknown]
  - Haemoglobin decreased [Unknown]
  - Pyrexia [Unknown]
  - Blood sodium decreased [Unknown]
  - Hepatomegaly [Unknown]
  - Diarrhoea [Recovered/Resolved]
